FAERS Safety Report 10781686 (Version 7)
Quarter: 2015Q2

REPORT INFORMATION
  Report Type: Spontaneous
  Country: FR (occurrence: FR)
  Receive Date: 20150210
  Receipt Date: 20150625
  Transmission Date: 20150821
  Serious: Yes (Hospitalization, Other)
  Sender: FDA-Public Use
  Company Number: FR-SA-2015SA014523

PATIENT
  Sex: Female

DRUGS (2)
  1. CEBUTID [Concomitant]
     Active Substance: FLURBIPROFEN
     Dosage: 2 TABLETS / DAY SUBSEQUENTLY 1 TABLET / DAY FROM?JANUARY
     Route: 048
     Dates: start: 201411, end: 20150128
  2. AUBAGIO [Suspect]
     Active Substance: TERIFLUNOMIDE
     Indication: MULTIPLE SCLEROSIS
     Route: 048
     Dates: start: 20141125, end: 20150128

REACTIONS (2)
  - Hepatocellular injury [Recovered/Resolved]
  - Hepatitis [Recovered/Resolved]

NARRATIVE: CASE EVENT DATE: 20141229
